FAERS Safety Report 6434292-4 (Version None)
Quarter: 2009Q4

REPORT INFORMATION
  Report Type: 
  Country: None (occurrence: None)
  Receive Date: 20091109
  Receipt Date: 20091109
  Transmission Date: 20100525
  Serious: Yes (Other)
  Sender: FDA-Public Use
  Company Number: None

PATIENT
  Age: 48 Year
  Sex: Female
  Weight: 99.7913 kg

DRUGS (6)
  1. METOPROLOL TARTRATE [Suspect]
     Indication: CHEST PAIN
  2. LISINOPRIL [Suspect]
     Indication: BLOOD PRESSURE
  3. LASIX [Suspect]
  4. XANAX [Suspect]
  5. ASPIRIN [Suspect]
  6. NITROGLYCERIN [Suspect]

REACTIONS (3)
  - PRURITUS [None]
  - RASH [None]
  - URTICARIA [None]
